FAERS Safety Report 5000616-8 (Version None)
Quarter: 2006Q2

REPORT INFORMATION
  Report Type: 
  Country: None (occurrence: None)
  Receive Date: 20060512
  Receipt Date: 20060406
  Transmission Date: 20061013
  Serious: Yes (Other)
  Sender: FDA-Public Use
  Company Number: US-AMGEN-STX175353

PATIENT
  Age: 64 Year
  Sex: Female

DRUGS (6)
  1. ENBREL [Suspect]
     Indication: RHEUMATOID ARTHRITIS
     Dates: start: 20011001, end: 20060201
  2. ENBREL [Suspect]
     Dates: start: 20011001, end: 20050101
  3. ARAVA [Concomitant]
     Dates: start: 20010101, end: 20030601
  4. PREDNISONE TAB [Concomitant]
  5. HYDROCODONE [Concomitant]
  6. GABAPENTIN [Concomitant]

REACTIONS (4)
  - INTERVERTEBRAL DISC DISORDER [None]
  - POST HERPETIC NEURALGIA [None]
  - SCIATICA [None]
  - WALDENSTROM'S MACROGLOBULINAEMIA [None]
